FAERS Safety Report 12256964 (Version 4)
Quarter: 2017Q3

REPORT INFORMATION
  Report Type: Spontaneous
  Country: US (occurrence: US)
  Receive Date: 20160412
  Receipt Date: 20170811
  Transmission Date: 20171127
  Serious: No
  Sender: FDA-Public Use
  Company Number: US-PFIZER INC-2016122964

PATIENT
  Age: 53 Year
  Sex: Male
  Weight: 90 kg

DRUGS (4)
  1. CYCLOBENZAPRINE. [Concomitant]
     Active Substance: CYCLOBENZAPRINE
     Indication: NERVE INJURY
     Dosage: 10 MG, 3X/DAY
     Route: 048
     Dates: start: 1990
  2. VIAGRA [Suspect]
     Active Substance: SILDENAFIL CITRATE
     Indication: ERECTILE DYSFUNCTION
     Dosage: 50 MG, AS NEEDED (WOULD USE 2 OR 3 OF THE 50 MG TABLETS)
     Dates: start: 20150101
  3. VIAGRA [Suspect]
     Active Substance: SILDENAFIL CITRATE
     Indication: SEXUAL ACTIVITY INCREASED
     Dosage: 100 MG, (TAKING 2 OR 3 OF THE 100MG TABLETS AS NEEDED)
     Dates: end: 2017
  4. VIAGRA [Suspect]
     Active Substance: SILDENAFIL CITRATE
     Dosage: 100 MG, UNK (TRIED 2 TWICE)

REACTIONS (3)
  - Drug ineffective [Unknown]
  - Drug dispensing error [Recovered/Resolved]
  - Intentional overdose [Unknown]

NARRATIVE: CASE EVENT DATE: 20150101
